FAERS Safety Report 23920455 (Version 1)
Quarter: 2024Q2

REPORT INFORMATION
  Report Type: Spontaneous
  Country: CN (occurrence: CN)
  Receive Date: 20240530
  Receipt Date: 20240530
  Transmission Date: 20240716
  Serious: Yes (Hospitalization)
  Sender: FDA-Public Use
  Company Number: None

PATIENT
  Age: 57 Year
  Sex: Female
  Weight: 59 kg

DRUGS (2)
  1. CYCLOPHOSPHAMIDE [Suspect]
     Active Substance: CYCLOPHOSPHAMIDE
     Indication: Neoplasm malignant
     Dosage: 0.9 G, QD, DILUTED WITH 30 ML OF 0.9% SODIUM CHLORIDE, ANTI-TUMOR TREATMENT, START TIME: AT 07:56 HR
     Route: 041
     Dates: start: 20240523, end: 20240523
  2. SODIUM CHLORIDE [Suspect]
     Active Substance: SODIUM CHLORIDE
     Indication: Medication dilution
     Dosage: 30 ML, QD, USED TO DILUTE 0.9 G OF CYCLOPHOSPHAMIDE, STRENGTH: 0.9%, DOSAGE FORM: INJECTION, ANTI-TU
     Route: 041
     Dates: start: 20240523, end: 20240523

REACTIONS (1)
  - Hepatic function abnormal [Unknown]

NARRATIVE: CASE EVENT DATE: 20240526
